FAERS Safety Report 4745737-X (Version None)
Quarter: 2005Q3

REPORT INFORMATION
  Report Type: 
  Country: None (occurrence: None)
  Receive Date: 20050811
  Receipt Date: 20050731
  Transmission Date: 20060218
  Serious: Yes (Death)
  Sender: FDA-Public Use
  Company Number: 2005108482

PATIENT
  Age: 55 Year
  Sex: Male

DRUGS (7)
  1. NIFEDIPINE [Suspect]
     Indication: HYPERTENSION
     Dosage: 30 MG , ORAL
     Route: 048
     Dates: end: 20050627
  2. ATENOLOL [Suspect]
     Indication: HYPERTENSION
     Dosage: 150 MG, ORAL
     Route: 048
     Dates: end: 20050627
  3. EZETROL (EZETIMIBE) [Suspect]
     Indication: HYPERCHOLESTEROLAEMIA
     Dosage: 10 MG, ORAL
     Route: 048
     Dates: start: 20050607, end: 20050627
  4. CRESTOR [Suspect]
     Indication: HYPERCHOLESTEROLAEMIA
     Dosage: 10 MG, ORAL
     Route: 048
     Dates: start: 20050602, end: 20050627
  5. COVERSYL (PERINDOPRIL) [Suspect]
     Indication: ESSENTIAL HYPERTENSION
     Dosage: 2 MG, ORAL
     Route: 048
     Dates: end: 20050627
  6. PLAVIX [Suspect]
     Indication: ILL-DEFINED DISORDER
     Dosage: 75 MG, ORAL
     Route: 048
     Dates: end: 20050627
  7. PRAVASTATIN [Concomitant]

REACTIONS (5)
  - CARDIAC ARREST [None]
  - CARDIAC FIBRILLATION [None]
  - COUGH [None]
  - SEASONAL ALLERGY [None]
  - TRACHEITIS [None]
